FAERS Safety Report 9001380 (Version 1)
Quarter: 2013Q1

REPORT INFORMATION
  Report Type: Spontaneous
  Country: US (occurrence: US)
  Receive Date: 20130107
  Receipt Date: 20130107
  Transmission Date: 20140127
  Serious: Yes (Death)
  Sender: FDA-Public Use
  Company Number: US-PFIZER INC-2013004338

PATIENT
  Age: 39 Year
  Sex: Male

DRUGS (3)
  1. DEXTROMETHORPHAN HBR AND GUAIFENESIN [Suspect]
     Route: 048
  2. DIPHENHYDRAMINE [Suspect]
     Route: 048
  3. DOXYLAMINE [Suspect]
     Route: 048

REACTIONS (3)
  - Intentional drug misuse [Fatal]
  - Cardiac arrest [Fatal]
  - Respiratory arrest [Fatal]
